FAERS Safety Report 21379734 (Version 2)
Quarter: 2022Q4

REPORT INFORMATION
  Report Type: Report from Study
  Country: US (occurrence: US)
  Receive Date: 20220927
  Receipt Date: 20221020
  Transmission Date: 20230113
  Serious: Yes (Hospitalization)
  Sender: FDA-Public Use
  Company Number: US-ABBVIE-4129879

PATIENT
  Sex: Male

DRUGS (7)
  1. VENCLEXTA [Suspect]
     Active Substance: VENETOCLAX
     Indication: Acute myelomonocytic leukaemia
     Dosage: TAKE WITH MEAL AND WATER AT THE SAME TIME EACH DAY.
     Route: 048
     Dates: start: 20220822, end: 20220822
  2. VENCLEXTA [Suspect]
     Active Substance: VENETOCLAX
     Indication: Acute myelomonocytic leukaemia
     Dosage: TAKE WITH MEAL AND WATER AT THE SAME TIME EACH DAY.
     Route: 048
     Dates: start: 20220823, end: 20220823
  3. VENCLEXTA [Suspect]
     Active Substance: VENETOCLAX
     Indication: Acute myelomonocytic leukaemia
     Dosage: TAKE WITH MEAL AND WATER AT THE SAME TIME EACH DAY.
     Route: 048
     Dates: start: 20220824, end: 20220824
  4. VENCLEXTA [Suspect]
     Active Substance: VENETOCLAX
     Indication: Acute myelomonocytic leukaemia
     Dosage: TAKE WITH MEAL AND WATER AT THE SAME TIME EACH DAY.
     Route: 048
     Dates: start: 20220825, end: 20220825
  5. ALLOPURINOL [Concomitant]
     Active Substance: ALLOPURINOL
     Indication: Product used for unknown indication
     Route: 048
     Dates: start: 20220714
  6. ATIVAN [Concomitant]
     Active Substance: LORAZEPAM
     Indication: Product used for unknown indication
     Route: 048
     Dates: start: 20220816
  7. DACOGEN [Concomitant]
     Active Substance: DECITABINE
     Indication: Product used for unknown indication
     Dosage: 20MG/M2 D1-5Q 28 DAYS*12 CYCLES
     Route: 042
     Dates: start: 20220822

REACTIONS (4)
  - Escherichia infection [Unknown]
  - Off label use [Unknown]
  - Gastroenteritis salmonella [Unknown]
  - Sepsis [Unknown]
